FAERS Safety Report 9447067 (Version 2)
Quarter: 2013Q3

REPORT INFORMATION
  Report Type: Spontaneous
  Country: US (occurrence: US)
  Receive Date: 20130807
  Receipt Date: 20130906
  Transmission Date: 20140515
  Serious: No
  Sender: FDA-Public Use
  Company Number: US-AMGEN-USASP2013053471

PATIENT
  Age: 56 Year
  Sex: Female
  Weight: 83.45 kg

DRUGS (12)
  1. ENBREL [Suspect]
     Indication: RHEUMATOID ARTHRITIS
     Dosage: 50 MG, QWK
     Route: 058
     Dates: start: 20130710
  2. METHOTREXATE [Concomitant]
     Dosage: 2.5 MG, UNK
     Route: 048
     Dates: start: 201303
  3. PLAQUENIL                          /00072602/ [Concomitant]
     Dosage: 200 MG, BID
     Route: 048
     Dates: start: 201210
  4. LIVALO [Concomitant]
     Dosage: 1 MG, UNK
  5. ESTRING [Concomitant]
     Dosage: 2 MG, UNK
  6. PIROXICAM [Concomitant]
     Dosage: 10 MG, UNK
  7. ZOLPIDEM [Concomitant]
     Dosage: 6.25 MG, UNK
  8. ESTRACE [Concomitant]
     Dosage: 1 MG, UNK
  9. MULTIVITAMINS, PLAIN [Concomitant]
     Dosage: UNK
  10. CALCIUM [Concomitant]
     Dosage: 500, UNK
  11. COQ [Concomitant]
     Dosage: 100 MG, UNK
  12. FOLIC ACID [Concomitant]
     Dosage: UNK

REACTIONS (2)
  - Rash papular [Not Recovered/Not Resolved]
  - Dermatitis contact [Recovered/Resolved]
